FAERS Safety Report 5074185-0 (Version None)
Quarter: 2006Q3

REPORT INFORMATION
  Report Type: 
  Country: None (occurrence: None)
  Receive Date: 20060803
  Receipt Date: 20060721
  Transmission Date: 20061208
  Serious: Yes (Death)
  Sender: FDA-Public Use
  Company Number: 227782

PATIENT
  Age: 79 Year
  Sex: Male

DRUGS (18)
  1. RITUXAN [Suspect]
     Indication: NON-HODGKIN'S LYMPHOMA
     Dosage: 580 MG, INTRAVENOUS
     Route: 042
     Dates: start: 20040706, end: 20041203
  2. DOXORUBICIN HYDROCHLORIDE [Suspect]
     Indication: NON-HODGKIN'S LYMPHOMA
     Dosage: 60 MG, INTRAVENOUS
     Route: 042
     Dates: start: 20040610, end: 20041111
  3. CYCLOPHOSPHAMIDE [Suspect]
     Indication: NON-HODGKIN'S LYMPHOMA
     Dosage: 1000 MG, INTRAVENOUS
     Route: 042
     Dates: start: 20040610, end: 20041111
  4. ONCOVIN [Suspect]
     Indication: NON-HODGKIN'S LYMPHOMA
     Dosage: 1.5 MG, INTRAVENOUS
     Route: 042
     Dates: start: 20040610, end: 20041111
  5. PREDNISOLONE [Suspect]
     Indication: NON-HODGKIN'S LYMPHOMA
     Dosage: 100 MG, ORAL
     Route: 048
     Dates: start: 20040610, end: 20041115
  6. POLARAMINE [Concomitant]
  7. IBUPROFEN [Concomitant]
  8. SIGMART (NICORANDIL) [Concomitant]
  9. ISOSORBIDE DINITRATE [Concomitant]
  10. FOIPAN (CAMOSTAT) [Concomitant]
  11. NORVASC [Concomitant]
  12. LASIX [Concomitant]
  13. SULFAMETHOXAZOLE + TRIMETHOPRIM [Concomitant]
  14. FAMOTIDINE [Concomitant]
  15. NITROGLYCERIN [Concomitant]
  16. ZOLPIDEM TARTRATE [Concomitant]
  17. ALLOPURINOL [Concomitant]
  18. MICARDIS [Concomitant]

REACTIONS (1)
  - RESPIRATORY FAILURE [None]
